FAERS Safety Report 4591208-3 (Version None)
Quarter: 2005Q1

REPORT INFORMATION
  Report Type: 
  Country: None (occurrence: None)
  Receive Date: 20050225
  Receipt Date: 20050209
  Transmission Date: 20050727
  Serious: Yes (Life-Threatening, Hospitalization, Disabling)
  Sender: FDA-Public Use
  Company Number: US-MERCK-0502USA00984

PATIENT
  Age: 64 Year
  Sex: Female

DRUGS (2)
  1. VIOXX [Suspect]
     Indication: BACK PAIN
     Route: 048
     Dates: start: 19990101, end: 20041001
  2. PREVACID [Concomitant]
     Indication: PROPHYLAXIS
     Route: 065

REACTIONS (4)
  - DIZZINESS [None]
  - HAEMATEMESIS [None]
  - HEADACHE [None]
  - NAUSEA [None]
